FAERS Safety Report 18797639 (Version 3)
Quarter: 2025Q3

REPORT INFORMATION
  Report Type: Spontaneous
  Country: EU (occurrence: EU)
  Receive Date: 20210127
  Receipt Date: 20250718
  Transmission Date: 20251021
  Serious: Yes (Hospitalization, Other)
  Sender: AUROBINDO
  Company Number: EU-PFIZER INC-2021016758

PATIENT
  Age: 44 Year
  Sex: Male

DRUGS (1)
  1. ACYCLOVIR SODIUM [Suspect]
     Active Substance: ACYCLOVIR SODIUM
     Indication: Encephalitis viral
     Dosage: 10 MILLIGRAM/KILOGRAM, 3 TIMES A DAY
     Route: 042

REACTIONS (2)
  - Encephalopathy [Recovered/Resolved]
  - Central nervous system lesion [Recovered/Resolved]
